FAERS Safety Report 8196779-6 (Version None)
Quarter: 2012Q1

REPORT INFORMATION
  Report Type: 
  Country: None (occurrence: None)
  Receive Date: 20120309
  Receipt Date: 20120306
  Transmission Date: 20120608
  Serious: Yes (Hospitalization, Other)
  Sender: FDA-Public Use
  Company Number: AU-PFIZER INC-2011066850

PATIENT
  Age: 32 Year
  Sex: Female
  Weight: 100 kg

DRUGS (7)
  1. PRISTIQ [Suspect]
     Indication: DEPRESSION
     Dosage: 50 MG, DAILY
     Route: 048
     Dates: start: 20100101
  2. VENTOLIN [Suspect]
     Indication: ASTHMA
     Dosage: 6 PUFF(S), AS NEEDED
     Dates: start: 20100401
  3. ENOXAPARIN SODIUM [Suspect]
     Indication: PULMONARY EMBOLISM
     Dosage: 100 MG, 2X/DAY
     Route: 058
     Dates: start: 20110301, end: 20110304
  4. DOXYCYCLINE HYCLATE [Suspect]
     Indication: ACNE
     Dosage: 100 MG, DAILY
     Route: 048
     Dates: start: 20090801
  5. WARFARIN SODIUM [Suspect]
     Indication: PULMONARY EMBOLISM
     Dosage: 8 MG, DAILY
     Route: 048
     Dates: start: 20090601
  6. PANTOPRAZOLE [Suspect]
     Indication: GASTRIC ULCER
     Dosage: 40 MG DAILY
     Route: 048
     Dates: start: 20100401
  7. OXYCONTIN [Suspect]
     Indication: PAIN
     Dosage: 10 MG, 2X/DAY
     Route: 048
     Dates: start: 20110301

REACTIONS (1)
  - LIVER FUNCTION TEST ABNORMAL [None]
